FAERS Safety Report 4826319-8 (Version None)
Quarter: 2005Q4

REPORT INFORMATION
  Report Type: 
  Country: None (occurrence: None)
  Receive Date: 20051111
  Receipt Date: 20051101
  Transmission Date: 20060501
  Serious: Yes (Hospitalization)
  Sender: FDA-Public Use
  Company Number: DE-ROCHE-423377

PATIENT
  Age: 59 Year
  Sex: Female

DRUGS (14)
  1. MYCOPHENOLATE MOFETIL [Suspect]
     Route: 042
     Dates: start: 20050217, end: 20050221
  2. MYCOPHENOLATE MOFETIL [Suspect]
     Route: 048
     Dates: start: 20050222, end: 20050624
  3. TACROLIMUS [Suspect]
     Dosage: 24 HOUR INFUSION.
     Route: 042
     Dates: start: 20050217, end: 20050218
  4. TACROLIMUS [Suspect]
     Dosage: DOSE ADJUSTED TO REACH PREDEFINED TARGET LEVELS.
     Route: 048
     Dates: start: 20050218, end: 20050625
  5. PREDNISONE [Suspect]
     Route: 065
     Dates: start: 20050218, end: 20050220
  6. PREDNISOLONE [Suspect]
     Dosage: DOSE TAPERED ACCORDING TO LOCAL PROTOCOL.
     Route: 065
     Dates: start: 20050220
  7. CORTICOSTEROIDS [Suspect]
     Dosage: OTHER CORTICOSTEROID FOR TREATMENT OF REJECTION.
     Route: 065
     Dates: start: 20050716, end: 20050720
  8. GANCICLOVIR [Concomitant]
     Dates: start: 20050218
  9. INSULINE [Concomitant]
     Indication: DIABETES MELLITUS
     Dates: start: 19980615
  10. FUROSEMIDE [Concomitant]
     Indication: DIURETIC EFFECT
     Dates: start: 20050222
  11. SPIRONOLACTONE [Concomitant]
     Indication: DIURETIC EFFECT
     Dates: start: 19950615
  12. PROPRANOLOL [Concomitant]
     Indication: HYPERTONIA
     Dates: start: 20010615
  13. ACARBOSE [Concomitant]
     Indication: DIABETES MELLITUS
     Dates: start: 19990615
  14. ACTRAPHANE [Concomitant]
     Indication: DIABETES MELLITUS
     Dates: start: 19990615

REACTIONS (3)
  - COORDINATION ABNORMAL [None]
  - DRUG TOXICITY [None]
  - DYSARTHRIA [None]
